FAERS Safety Report 8018625-3 (Version None)
Quarter: 2012Q1

REPORT INFORMATION
  Report Type: 
  Country: None (occurrence: None)
  Receive Date: 20120103
  Receipt Date: 20111220
  Transmission Date: 20120608
  Serious: Yes (Hospitalization)
  Sender: FDA-Public Use
  Company Number: NL-UCBSA-048030

PATIENT
  Age: 58 Year
  Sex: Female

DRUGS (3)
  1. KEPPRA [Suspect]
     Indication: EPILEPSY
     Route: 048
     Dates: start: 20080101
  2. LISINOPRIL [Concomitant]
     Route: 048
  3. CARBAMAZEPINE [Concomitant]
     Indication: EPILEPSY
     Route: 048

REACTIONS (7)
  - DIZZINESS [None]
  - FALL [None]
  - JOINT DISLOCATION [None]
  - AGITATION [None]
  - HIP FRACTURE [None]
  - SLEEP DISORDER [None]
  - WEIGHT INCREASED [None]
